FAERS Safety Report 9267874 (Version 2)
Quarter: 2014Q1

REPORT INFORMATION
  Report Type: Report from Study
  Country: US (occurrence: US)
  Receive Date: 20130502
  Receipt Date: 20140320
  Transmission Date: 20141002
  Serious: Yes (Hospitalization, Other)
  Sender: FDA-Public Use
  Company Number: US-ALEXION-A201201150

PATIENT
  Age: 44 Year
  Sex: Female
  Weight: 75.28 kg

DRUGS (18)
  1. SOLIRIS [Suspect]
     Indication: PAROXYSMAL NOCTURNAL HAEMOGLOBINURIA
     Dosage: 900 MG, QW
     Route: 042
     Dates: start: 20080519
  2. SOLIRIS [Suspect]
     Dosage: 600 MG, Q2W
     Route: 042
  3. SOLIRIS [Suspect]
     Dosage: 900 MG, Q2W
     Route: 042
     Dates: start: 20120325
  4. SYMBICORT [Concomitant]
     Indication: ASTHMA
     Dosage: 80/4.5 MCG
     Route: 055
  5. ADVAIR [Concomitant]
     Indication: ASTHMA
     Dosage: UNK
     Route: 055
  6. ALBUTEROL SULFATE [Concomitant]
     Indication: ASTHMA
     Dosage: UNK
     Route: 055
  7. ASPIRIN [Concomitant]
     Indication: CORONARY ARTERY DISEASE
     Dosage: UNK
     Route: 048
  8. BENADRYL [Concomitant]
     Dosage: UNK
     Route: 048
  9. DILAUDID [Concomitant]
     Indication: PAIN
     Dosage: 4 MG, Q4-6HR, PRN
     Route: 048
  10. FOLIC ACID [Concomitant]
     Indication: FOLATE DEFICIENCY
     Dosage: UNK
     Route: 048
  11. MULTIVITAMIN [Concomitant]
     Dosage: UNK
  12. PAXIL [Concomitant]
     Dosage: UNK
     Route: 048
  13. PHENERGAN [Concomitant]
  14. RESTORIL [Concomitant]
     Dosage: UNK
     Route: 048
  15. SPIRIVA [Concomitant]
     Indication: ASTHMA
     Dosage: UNK
     Route: 055
  16. TRAMADOL HCL [Concomitant]
     Indication: PAIN
     Dosage: 50 MG, TID
     Route: 060
  17. DESFERAL [Concomitant]
     Indication: IRON OVERLOAD
     Dosage: UNK
     Route: 048
  18. ARANESP [Concomitant]
     Indication: ANAEMIA
     Dosage: 200 MCG, Q2 WEEKS
     Route: 060

REACTIONS (9)
  - Intestinal obstruction [Recovered/Resolved]
  - Ovarian cyst [Recovered/Resolved]
  - Hysterectomy [Recovered/Resolved]
  - Chronic myeloid leukaemia [Unknown]
  - Contusion [Unknown]
  - Pyrexia [Unknown]
  - Insomnia [Unknown]
  - Hyperhidrosis [None]
  - Chills [Unknown]
